FAERS Safety Report 7150909-3 (Version None)
Quarter: 2010Q4

REPORT INFORMATION
  Report Type: 
  Country: None (occurrence: None)
  Receive Date: 20101210
  Receipt Date: 20101208
  Transmission Date: 20110411
  Serious: Yes (Disabling)
  Sender: FDA-Public Use
  Company Number: NO-ROCHE-746389

PATIENT
  Sex: Female

DRUGS (4)
  1. TAMIFLU [Suspect]
     Indication: H1N1 INFLUENZA
     Dosage: FREQUENCY AS REPORTED: X2
     Route: 048
     Dates: start: 20101017, end: 20101022
  2. PARACETAMOL [Concomitant]
  3. ACTIVELLE [Concomitant]
     Route: 048
     Dates: start: 19940101
  4. FOLIC ACID [Concomitant]
     Indication: COELIAC DISEASE
     Dosage: FREQUENCY: X1/6 DAYS PER WEEK
     Route: 048

REACTIONS (2)
  - PSORIATIC ARTHROPATHY [None]
  - PUSTULAR PSORIASIS [None]
